FAERS Safety Report 18470748 (Version 1)
Quarter: 2020Q4

REPORT INFORMATION
  Report Type: Spontaneous
  Country: GB (occurrence: GB)
  Receive Date: 20201106
  Receipt Date: 20201106
  Transmission Date: 20210114
  Serious: Yes (Hospitalization)
  Sender: FDA-Public Use
  Company Number: GB-TEVA-2020-GB-1844714

PATIENT
  Age: 50 Year
  Sex: Male

DRUGS (6)
  1. LEVOTHYROXINE. [Concomitant]
     Active Substance: LEVOTHYROXINE
     Dosage: 100UG + 50UG TABLETS  (UNIT DOSE: 150 MCG)
     Route: 048
  2. HYDROXOCOBALAMIN [Concomitant]
     Active Substance: HYDROXOCOBALAMIN
     Dosage: 1 MG
  3. WARFARIN [Suspect]
     Active Substance: WARFARIN
     Dosage: DOSE -2MG MONDAY, 3MG TUESDAY, 2MG WEDNESDAYS, 3MG THURSDAYS, 2MG FRIDAYS, 3MG SATURDAYS, 3MG SUNDAY
     Route: 065
  4. LISINOPRIL. [Concomitant]
     Active Substance: LISINOPRIL
     Dosage: 40 DOSAGE FORMS
     Route: 048
     Dates: end: 20200325
  5. ALLOPURINOL. [Concomitant]
     Active Substance: ALLOPURINOL
     Dosage: 600 MG
     Route: 048
  6. AMLODIPINE [Concomitant]
     Active Substance: AMLODIPINE BESYLATE
     Dosage: 10 MG
     Route: 048
     Dates: end: 20200325

REACTIONS (1)
  - Haematuria [Recovered/Resolved]
